FAERS Safety Report 17488790 (Version 1)
Quarter: 2020Q1

REPORT INFORMATION
  Report Type: Spontaneous
  Country: US (occurrence: US)
  Receive Date: 20200221
  Receipt Date: 20200221
  Transmission Date: 20200409
  Serious: No
  Sender: FDA-Public Use
  Company Number: None

PATIENT
  Age: 15 Year
  Sex: Male

DRUGS (1)
  1. TADALAFIL TAB 20MG [Suspect]
     Active Substance: TADALAFIL
     Route: 058
     Dates: start: 201907

REACTIONS (1)
  - Off label use [None]

NARRATIVE: CASE EVENT DATE: 20190701
